FAERS Safety Report 5916546-0 (Version None)
Quarter: 2008Q4

REPORT INFORMATION
  Report Type: 
  Country: None (occurrence: None)
  Receive Date: 20081013
  Receipt Date: 20081006
  Transmission Date: 20090506
  Serious: Yes (Life-Threatening, Hospitalization)
  Sender: FDA-Public Use
  Company Number: B0540246A

PATIENT
  Age: 72 Year
  Sex: Male

DRUGS (16)
  1. AMOXICILLIN + CLAVULANATE POTASSIUM [Suspect]
     Indication: TOOTH ABSCESS
     Dosage: 1875MG PER DAY
     Route: 048
     Dates: start: 20080928, end: 20080930
  2. SIMVASTATIN [Suspect]
     Dosage: 80MG PER DAY
     Route: 048
     Dates: start: 20080301
  3. ERYTHROMYCIN [Suspect]
     Indication: TOOTH ABSCESS
     Dosage: 1000MG PER DAY
     Route: 048
     Dates: start: 20080925, end: 20080928
  4. LISINOPRIL [Suspect]
     Indication: HYPERTENSION
     Dosage: 20MG PER DAY
     Route: 048
     Dates: start: 20041201, end: 20080930
  5. CANDESARTAN CILEXETIL [Suspect]
     Indication: HYPERTENSION
     Dosage: 8MG PER DAY
     Route: 048
     Dates: start: 20051101
  6. FUROSEMIDE [Concomitant]
  7. GLIMEPIRIDE [Concomitant]
  8. LEVOTHYROXINE SODIUM [Concomitant]
  9. METFORMIN HCL [Concomitant]
  10. NEBIVOLOL HCL [Concomitant]
  11. PIOGLITAZONE HYDROCHLORIDE [Concomitant]
  12. WARFARIN SODIUM [Concomitant]
  13. ADIZEM-XL [Concomitant]
  14. ALLOPURINOL [Concomitant]
  15. DIGOXIN [Concomitant]
  16. EZETIMIBE [Concomitant]

REACTIONS (5)
  - ANGIOEDEMA [None]
  - DYSPHONIA [None]
  - OROPHARYNGEAL PAIN [None]
  - RESPIRATORY DISTRESS [None]
  - SWOLLEN TONGUE [None]
